FAERS Safety Report 7404223-9 (Version None)
Quarter: 2011Q2

REPORT INFORMATION
  Report Type: 
  Country: None (occurrence: None)
  Receive Date: 20110408
  Receipt Date: 20110314
  Transmission Date: 20111010
  Serious: Yes (Hospitalization)
  Sender: FDA-Public Use
  Company Number: US-BAYER-2011-022077

PATIENT
  Age: 41 Year
  Sex: Female
  Weight: 72.562 kg

DRUGS (5)
  1. YAZ [Suspect]
     Indication: ACNE
     Dosage: UNK
     Dates: start: 19800101, end: 20030101
  2. IBUPROFEN [Concomitant]
  3. IBUPROFEN (ADVIL) [Concomitant]
  4. YASMIN [Suspect]
     Indication: ACNE
     Dosage: UNK
     Dates: start: 19800101, end: 20030101
  5. GLUCOSAMINE [Concomitant]
     Dosage: UNK
     Dates: start: 20000101

REACTIONS (5)
  - INJURY [None]
  - DEEP VEIN THROMBOSIS [None]
  - EMOTIONAL DISTRESS [None]
  - PAIN [None]
  - PULMONARY EMBOLISM [None]
